FAERS Safety Report 10075801 (Version 1)
Quarter: 2014Q2

REPORT INFORMATION
  Report Type: Spontaneous
  Country: US (occurrence: US)
  Receive Date: 20140414
  Receipt Date: 20140414
  Transmission Date: 20141212
  Serious: Yes (Other)
  Sender: FDA-Public Use
  Company Number: US-TEVA-474683USA

PATIENT
  Age: 56 Year
  Sex: Female

DRUGS (1)
  1. PROPOFOL [Suspect]
     Indication: SEDATIVE THERAPY
     Route: 065

REACTIONS (2)
  - Splenic injury [Recovering/Resolving]
  - Splenic haematoma [Recovering/Resolving]
